FAERS Safety Report 8599534-8 (Version None)
Quarter: 2012Q3

REPORT INFORMATION
  Report Type: 
  Country: None (occurrence: None)
  Receive Date: 20120808
  Receipt Date: 20120808
  Transmission Date: 20120928
  Serious: Yes (Other)
  Sender: FDA-Public Use
  Company Number: None

PATIENT

DRUGS (2)
  1. HIZENTRA [Suspect]
     Indication: HYPOGAMMAGLOBULINAEMIA
     Dosage: 15 GM, WEEKLY, SUBCUTANEOUS
     Route: 058
     Dates: start: 20120711
  2. HIZENTRA [Suspect]
     Indication: IMMUNODEFICIENCY
     Dosage: 15 GM, WEEKLY, SUBCUTANEOUS
     Route: 058
     Dates: start: 20120711

REACTIONS (6)
  - NAUSEA [None]
  - MALAISE [None]
  - PAIN [None]
  - PYREXIA [None]
  - INFECTION [None]
  - TENDERNESS [None]
